FAERS Safety Report 5193870-3 (Version None)
Quarter: 2006Q4

REPORT INFORMATION
  Report Type: 
  Country: None (occurrence: None)
  Receive Date: 20061228
  Receipt Date: 20061221
  Transmission Date: 20070319
  Serious: Yes (Other)
  Sender: FDA-Public Use
  Company Number: US-AMGEN-US204436

PATIENT

DRUGS (1)
  1. ARANESP [Suspect]
     Indication: MYELODYSPLASTIC SYNDROME

REACTIONS (3)
  - APLASIA PURE RED CELL [None]
  - BLOOD PRODUCT TRANSFUSION DEPENDENT [None]
  - THERAPY NON-RESPONDER [None]
